APPROVED DRUG PRODUCT: PROMETHAZINE HYDROCHLORIDE
Active Ingredient: PROMETHAZINE HYDROCHLORIDE
Strength: 6.25MG/5ML
Dosage Form/Route: SYRUP;ORAL
Application: A085388 | Product #001
Applicant: KV PHARMACEUTICAL CO
Approved: Approved Prior to Jan 1, 1982 | RLD: No | RS: No | Type: DISCN